FAERS Safety Report 25902672 (Version 1)
Quarter: 2025Q4

REPORT INFORMATION
  Report Type: Spontaneous
  Country: US (occurrence: None)
  Receive Date: 20251008
  Receipt Date: 20251008
  Transmission Date: 20260118
  Serious: No
  Sender: FDA-CTU
  Company Number: None

PATIENT
  Sex: Female

DRUGS (1)
  1. TICE BCG [Suspect]
     Active Substance: BACILLUS CALMETTE-GUERIN SUBSTRAIN TICE LIVE ANTIGEN

REACTIONS (4)
  - Exposure to body fluid [None]
  - Exposure to household chemicals [None]
  - Exposure via skin contact [None]
  - Accidental exposure to product [None]

NARRATIVE: CASE EVENT DATE: 20250822
